FAERS Safety Report 5709963-5 (Version None)
Quarter: 2008Q2

REPORT INFORMATION
  Report Type: 
  Country: None (occurrence: None)
  Receive Date: 20080418
  Receipt Date: 20070731
  Transmission Date: 20081010
  Serious: No
  Sender: FDA-Public Use
  Company Number: US-ASTRAZENECA-2007UW18382

PATIENT
  Age: 64 Year
  Sex: Female
  Weight: 90.7 kg

DRUGS (5)
  1. TOPROL-XL [Suspect]
     Indication: HYPERTENSION
     Route: 048
     Dates: start: 20070620
  2. COZAAR [Concomitant]
  3. ZOCOR [Concomitant]
  4. PLAVIX [Concomitant]
  5. ASPIRIN [Concomitant]

REACTIONS (2)
  - PAIN IN EXTREMITY [None]
  - RASH [None]
